FAERS Safety Report 13926219 (Version 1)
Quarter: 2017Q3

REPORT INFORMATION
  Report Type: Spontaneous
  Country: DK (occurrence: DK)
  Receive Date: 20170831
  Receipt Date: 20170831
  Transmission Date: 20171127
  Serious: Yes (Disabling)
  Sender: FDA-Public Use
  Company Number: DK-PFIZER INC-2017374369

PATIENT
  Age: 43 Year
  Sex: Female

DRUGS (1)
  1. PROVERA [Suspect]
     Active Substance: MEDROXYPROGESTERONE ACETATE
     Indication: ENDOMETRIAL ABLATION
     Dosage: 5 MG, 2X/DAY
     Route: 048
     Dates: start: 20160922, end: 20161012

REACTIONS (6)
  - Visual impairment [Not Recovered/Not Resolved]
  - Retinal vascular thrombosis [Recovered/Resolved with Sequelae]
  - Eye irritation [Unknown]
  - Visual field defect [Not Recovered/Not Resolved]
  - Vision blurred [Not Recovered/Not Resolved]
  - Headache [Recovered/Resolved]

NARRATIVE: CASE EVENT DATE: 20160922
